FAERS Safety Report 15411760 (Version 1)
Quarter: 2018Q3

REPORT INFORMATION
  Report Type: Report from Study
  Country: US (occurrence: US)
  Receive Date: 20180921
  Receipt Date: 20180921
  Transmission Date: 20181010
  Serious: No
  Sender: FDA-Public Use
  Company Number: PHEH2018US038313

PATIENT
  Sex: Male

DRUGS (1)
  1. COSENTYX [Suspect]
     Active Substance: SECUKINUMAB
     Indication: PRODUCT USED FOR UNKNOWN INDICATION
     Dosage: UNK
     Route: 058

REACTIONS (10)
  - Condition aggravated [Unknown]
  - Fatigue [Unknown]
  - Skin abrasion [Unknown]
  - Insomnia [Unknown]
  - Restlessness [Unknown]
  - Anxiety [Unknown]
  - Abnormal behaviour [Unknown]
  - Depression [Unknown]
  - Crying [Unknown]
  - Anger [Unknown]
